FAERS Safety Report 23258530 (Version 1)
Quarter: 2023Q4

REPORT INFORMATION
  Report Type: Spontaneous
  Country: HN (occurrence: HN)
  Receive Date: 20231204
  Receipt Date: 20231204
  Transmission Date: 20240110
  Serious: Yes (Hospitalization)
  Sender: FDA-Public Use
  Company Number: HN-BAYER-2023A172222

PATIENT
  Sex: Female

DRUGS (1)
  1. FINERENONE [Suspect]
     Active Substance: FINERENONE
     Dosage: 20 MG, QD
     Dates: start: 2023, end: 202307

REACTIONS (2)
  - Urinary tract infection [Unknown]
  - Cardiac failure [Unknown]

NARRATIVE: CASE EVENT DATE: 20230701
